FAERS Safety Report 18424153 (Version 1)
Quarter: 2020Q4

REPORT INFORMATION
  Report Type: Not Available
  Country: None (occurrence: None)
  Receive Date: 20201025
  Receipt Date: 20201025
  Transmission Date: 20210114
  Serious: Yes (Other)
  Sender: FDA-Public Use
  Company Number: US-AKORN-154813

PATIENT
  Age: 70 Year
  Sex: Female

DRUGS (1)
  1. BETIMOL [Suspect]
     Active Substance: TIMOLOL

REACTIONS (10)
  - Back pain [None]
  - Pain in extremity [None]
  - Headache [None]
  - Abdominal distension [None]
  - Paraesthesia [None]
  - Chest pain [None]
  - Diarrhoea [Recovered/Resolved]
  - Pain of skin [None]
  - Musculoskeletal stiffness [None]
  - Cluster headache [None]

NARRATIVE: CASE EVENT DATE: 20201018
